FAERS Safety Report 5541925-3 (Version None)
Quarter: 2007Q4

REPORT INFORMATION
  Report Type: 
  Country: None (occurrence: None)
  Receive Date: 20071210
  Receipt Date: 20071128
  Transmission Date: 20080405
  Serious: Yes (Death, Life-Threatening)
  Sender: FDA-Public Use
  Company Number: IE-ROCHE-531239

PATIENT
  Age: 64 Year
  Sex: Male
  Weight: 110.7 kg

DRUGS (4)
  1. XELODA [Suspect]
     Indication: GASTRIC CANCER
     Dosage: GIVEN DURING A THREE-WEEK-CYCLE.
     Route: 048
     Dates: start: 20070316, end: 20070330
  2. CISPLATIN [Suspect]
     Indication: GASTRIC CANCER
     Dosage: DOSING REGIMEN: D7.
     Route: 042
     Dates: start: 20070315, end: 20070315
  3. EPIRUBICIN [Suspect]
     Indication: GASTRIC CANCER
     Dosage: DOSING REGIMEN: D7.
     Route: 042
     Dates: start: 20070315, end: 20070315
  4. CLEXANE [Concomitant]
     Indication: ATRIAL FIBRILLATION
     Route: 058

REACTIONS (8)
  - DIARRHOEA [None]
  - DIFFUSE ALVEOLAR DAMAGE [None]
  - NEUTROPENIA [None]
  - PULMONARY OEDEMA [None]
  - PULMONARY TOXICITY [None]
  - RENAL FAILURE [None]
  - SEPTIC SHOCK [None]
  - THROMBOCYTOPENIA [None]
